FAERS Safety Report 5270973-6 (Version None)
Quarter: 2007Q1

REPORT INFORMATION
  Report Type: 
  Country: None (occurrence: None)
  Receive Date: 20061214
  Receipt Date: 20060109
  Transmission Date: 20070707
  Serious: Yes (Other)
  Sender: FDA-Public Use
  Company Number: 2005062993

PATIENT
  Sex: Male
  Weight: 96.6162 kg

DRUGS (7)
  1. BEXTRA [Suspect]
     Indication: ARTHRALGIA
     Dosage: 20 MG (1 IN 1 D), ORAL
     Route: 048
     Dates: start: 20020601, end: 20031201
  2. WARFARIN SODIUM [Concomitant]
  3. COUMADIN [Concomitant]
  4. DILTIAZEM [Concomitant]
  5. DYAZIDE [Concomitant]
  6. MULTIVITAMIN [Concomitant]
  7. RHINOCORT [Concomitant]

REACTIONS (2)
  - ANGIOEDEMA [None]
  - CHEST PAIN [None]
